FAERS Safety Report 5759330-3 (Version None)
Quarter: 2008Q2

REPORT INFORMATION
  Report Type: 
  Country: None (occurrence: None)
  Receive Date: 20080605
  Receipt Date: 20080530
  Transmission Date: 20081010
  Serious: Yes (Hospitalization)
  Sender: FDA-Public Use
  Company Number: GB-RANBAXY-2008RR-15249

PATIENT

DRUGS (12)
  1. SIMVASTATIN 10MG TABLETS [Suspect]
  2. FUSIDIC ACID [Suspect]
     Indication: STAPHYLOCOCCAL BACTERAEMIA
     Route: 048
  3. VANCOMYCIN [Concomitant]
     Route: 042
  4. CEFUROXIME [Concomitant]
  5. METRONIDAZOLE HCL [Concomitant]
  6. DESLORATADINE [Concomitant]
  7. ENALAPRIL MALEATE [Concomitant]
  8. DIPYRIDAMOLE [Concomitant]
  9. ASPIRIN [Concomitant]
  10. BISOPROLOL FUMARATE [Concomitant]
  11. RANITIDINE [Concomitant]
  12. DICLOFENAC SODIUM [Concomitant]

REACTIONS (10)
  - COLITIS ISCHAEMIC [None]
  - DRUG INTERACTION [None]
  - HAEMODIALYSIS [None]
  - MYOCARDIAL INFARCTION [None]
  - PERIPHERAL SENSORIMOTOR NEUROPATHY [None]
  - POST PROCEDURAL HAEMORRHAGE [None]
  - RENAL FAILURE [None]
  - RHABDOMYOLYSIS [None]
  - SPLENIC RUPTURE [None]
  - TACHYPNOEA [None]
